FAERS Safety Report 18422174 (Version 2)
Quarter: 2020Q4

REPORT INFORMATION
  Report Type: Spontaneous
  Country: US (occurrence: US)
  Receive Date: 20201023
  Receipt Date: 20201027
  Transmission Date: 20210114
  Serious: No
  Sender: FDA-Public Use
  Company Number: US-TEVA-2020-US-1840516

PATIENT
  Sex: Male

DRUGS (1)
  1. ARMODAFINIL TEVA [Suspect]
     Active Substance: ARMODAFINIL
     Indication: SLEEP DISORDER
     Dosage: 200 MILLIGRAM DAILY;
     Route: 065
     Dates: start: 202009

REACTIONS (4)
  - Off label use [Unknown]
  - Therapeutic product effect variable [Unknown]
  - Asthenia [Unknown]
  - Product use in unapproved indication [Unknown]

NARRATIVE: CASE EVENT DATE: 202010
